FAERS Safety Report 8589819 (Version 4)
Quarter: 2012Q4

REPORT INFORMATION
  Report Type: 
  Country: US (occurrence: US)
  Receive Date: 20120601
  Receipt Date: 20121212
  Transmission Date: 20130627
  Serious: Yes (Other)
  Sender: FDA-Public Use
  Company Number: US-PFIZER INC-2012130067

PATIENT
  Age: 44 Year
  Sex: Female
  Weight: 90.7 kg

DRUGS (9)
  1. LYRICA [Suspect]
     Indication: NEUROPATHY PERIPHERAL
     Dosage: 100 mg, 2x/day
     Route: 048
     Dates: start: 201105
  2. LYRICA [Suspect]
     Indication: NEUROMYOPATHY
     Dosage: 200 mg, 3x/day
     Route: 048
     Dates: start: 2011, end: 201210
  3. LYRICA [Suspect]
     Indication: NEURALGIA
  4. NEURONTIN [Concomitant]
     Dosage: UNK
  5. CELEXA [Concomitant]
     Indication: DEPRESSION
     Dosage: 40 mg, daily
  6. TOPAMAX [Concomitant]
     Indication: NERVOUS SYSTEM DISORDER
     Dosage: 50 mg, daily
  7. TOPAMAX [Concomitant]
     Dosage: UNK
  8. AMITRIPTYLINE [Concomitant]
     Indication: NERVOUS SYSTEM DISORDER
     Dosage: 300 mg, daily
  9. AMITRIPTYLINE [Concomitant]
     Dosage: UNK

REACTIONS (7)
  - Cellulitis [Unknown]
  - Pain in extremity [Recovered/Resolved]
  - Gait disturbance [Unknown]
  - Fall [Unknown]
  - Burning sensation [Not Recovered/Not Resolved]
  - Pain [Not Recovered/Not Resolved]
  - Movement disorder [Unknown]
